FAERS Safety Report 17617862 (Version 1)
Quarter: 2020Q2

REPORT INFORMATION
  Report Type: Spontaneous
  Country: IT (occurrence: IT)
  Receive Date: 20200402
  Receipt Date: 20200402
  Transmission Date: 20200713
  Serious: Yes (Other)
  Sender: FDA-Public Use
  Company Number: IT-SEBELA IRELAND LIMITED-2020SEB00038

PATIENT
  Age: 49 Year
  Sex: Male

DRUGS (1)
  1. AZATHIOPRINE. [Suspect]
     Active Substance: AZATHIOPRINE
     Indication: CROHN^S DISEASE
     Dosage: 2 MG/KG, 1X/DAY
     Route: 065
     Dates: start: 201410, end: 201712

REACTIONS (3)
  - Pancytopenia [Recovered/Resolved]
  - Portal hypertensive gastropathy [Unknown]
  - Hepatic cirrhosis [Unknown]

NARRATIVE: CASE EVENT DATE: 201712
